FAERS Safety Report 21047673 (Version 2)
Quarter: 2022Q3

REPORT INFORMATION
  Report Type: Report from Study
  Country: JP (occurrence: JP)
  Receive Date: 20220706
  Receipt Date: 20220718
  Transmission Date: 20221027
  Serious: Yes (Hospitalization)
  Sender: FDA-Public Use
  Company Number: JP-BAXTER-2022BAX013083

PATIENT
  Age: 39 Year
  Sex: Female

DRUGS (13)
  1. CYCLOPHOSPHAMIDE [Suspect]
     Active Substance: CYCLOPHOSPHAMIDE
     Indication: Product used for unknown indication
     Dosage: 40 MG/KG
     Route: 065
     Dates: start: 20220302, end: 20220302
  2. TACROLIMUS [Concomitant]
     Active Substance: TACROLIMUS
     Indication: Prophylaxis against transplant rejection
     Dosage: 9.5 MG, QD
     Route: 048
     Dates: start: 20220609
  3. TACROLIMUS [Concomitant]
     Active Substance: TACROLIMUS
     Dosage: 7.5 MG
     Route: 048
     Dates: start: 20220624
  4. DIPYRIDAMOLE [Concomitant]
     Active Substance: DIPYRIDAMOLE
     Indication: Embolism
     Dosage: 300 MG, QD
     Route: 048
     Dates: start: 20220305
  5. WARFARIN [Concomitant]
     Active Substance: WARFARIN
     Indication: Thrombosis prophylaxis
     Dosage: 2 MG, QD
     Route: 048
     Dates: start: 20220528
  6. WARFARIN [Concomitant]
     Active Substance: WARFARIN
     Dosage: 2.5 MG, QD
     Route: 048
     Dates: start: 20220602
  7. WARFARIN [Concomitant]
     Active Substance: WARFARIN
     Dosage: 3 MG, QD
     Route: 048
     Dates: start: 20220609
  8. URSODIOL [Concomitant]
     Active Substance: URSODIOL
     Indication: Hepatic function abnormal
     Dosage: 600 MG, QD
     Route: 048
     Dates: start: 20220305
  9. LANSOPRAZOLE [Concomitant]
     Active Substance: LANSOPRAZOLE
     Indication: Gastrointestinal mucosal disorder
     Dosage: 30 MG, QD
     Route: 048
     Dates: start: 20220305
  10. LANSOPRAZOLE [Concomitant]
     Active Substance: LANSOPRAZOLE
     Indication: Oedema
     Dosage: 10 MG, QD
     Route: 048
     Dates: start: 20220609
  11. Incremin [Concomitant]
     Indication: Anaemia
     Dosage: 30 ML, QD, SOLUBLE
     Route: 048
     Dates: start: 20220623
  12. BUTYLSCOPOLAMINE BROMIDE [Concomitant]
     Active Substance: BUTYLSCOPOLAMINE BROMIDE
     Indication: Dysmenorrhoea
     Dosage: 30 MG, QD
     Route: 048
     Dates: start: 20220630
  13. CALONAL [Concomitant]
     Active Substance: ACETAMINOPHEN
     Indication: Adenomyosis
     Dosage: 1200 MG, QD
     Route: 048
     Dates: start: 20220528

REACTIONS (2)
  - Dysmenorrhoea [Recovered/Resolved]
  - Dysmenorrhoea [Recovered/Resolved]

NARRATIVE: CASE EVENT DATE: 20220614
